FAERS Safety Report 6276405-3 (Version None)
Quarter: 2009Q3

REPORT INFORMATION
  Report Type: 
  Country: None (occurrence: None)
  Receive Date: 20090717
  Receipt Date: 20090717
  Transmission Date: 20100115
  Serious: Yes (Other)
  Sender: FDA-Public Use
  Company Number: None

PATIENT
  Sex: Male
  Weight: 24.0406 kg

DRUGS (1)
  1. ZYRTEC [Suspect]
     Indication: RHINITIS ALLERGIC
     Dosage: 1 TABLET DAILY PO
     Route: 048
     Dates: start: 20080505, end: 20090706

REACTIONS (3)
  - DYSKINESIA [None]
  - EYE ROLLING [None]
  - TIC [None]
